FAERS Safety Report 7649957-6 (Version None)
Quarter: 2011Q3

REPORT INFORMATION
  Report Type: 
  Country: None (occurrence: None)
  Receive Date: 20110802
  Receipt Date: 20110722
  Transmission Date: 20111222
  Serious: Yes (Other)
  Sender: FDA-Public Use
  Company Number: DE-BRISTOL-MYERS SQUIBB COMPANY-15924681

PATIENT
  Age: 43 Year
  Sex: Female

DRUGS (1)
  1. IRBESARTAN [Suspect]
     Dosage: SEP09-DEC09: 150MG (4 MONTHS) DEC09-JUL11: 300MG
     Route: 048
     Dates: start: 20090901, end: 20110701

REACTIONS (6)
  - DIZZINESS [None]
  - FALL [None]
  - LIGAMENT RUPTURE [None]
  - PHOTOPSIA [None]
  - UPPER LIMB FRACTURE [None]
  - APHASIA [None]
